FAERS Safety Report 8605164-1 (Version None)
Quarter: 2012Q3

REPORT INFORMATION
  Report Type: 
  Country: None (occurrence: None)
  Receive Date: 20120820
  Receipt Date: 20120810
  Transmission Date: 20120928
  Serious: Yes (Other)
  Sender: FDA-Public Use
  Company Number: US-US-EMD SERONO, INC.-7154394

PATIENT
  Sex: Female
  Weight: 79 kg

DRUGS (4)
  1. VITAMIN TAB [Concomitant]
     Indication: PRODUCT USED FOR UNKNOWN INDICATION
  2. REBIF [Suspect]
     Indication: MULTIPLE SCLEROSIS
     Route: 058
     Dates: start: 20111013
  3. CRANBERRY PILLS [Concomitant]
     Indication: URINARY RETENTION
  4. IBUPROFEN [Concomitant]
     Indication: PAIN

REACTIONS (6)
  - BRAIN NEOPLASM [None]
  - INFLUENZA LIKE ILLNESS [None]
  - TRIGGER FINGER [None]
  - BLOOD CHOLESTEROL INCREASED [None]
  - PRURITUS [None]
  - URTICARIA [None]
